FAERS Safety Report 5680636-0 (Version None)
Quarter: 2008Q1

REPORT INFORMATION
  Report Type: 
  Country: None (occurrence: None)
  Receive Date: 20080326
  Receipt Date: 20080103
  Transmission Date: 20080703
  Serious: Yes (Other)
  Sender: FDA-Public Use
  Company Number: A0701226A

PATIENT
  Age: 26 Year
  Sex: Male

DRUGS (4)
  1. FLOVENT [Suspect]
     Indication: ASTHMA
     Route: 055
  2. ALBUTEROL [Concomitant]
  3. PREDNISONE TAB [Concomitant]
  4. ANTIBIOTICS [Concomitant]

REACTIONS (1)
  - ASTHMA [None]
